FAERS Safety Report 21259531 (Version 1)
Quarter: 2022Q3

REPORT INFORMATION
  Report Type: Spontaneous
  Country: US (occurrence: None)
  Receive Date: 20220825
  Receipt Date: 20220825
  Transmission Date: 20221027
  Serious: Yes (Death)
  Sender: FDA-Public Use
  Company Number: None

PATIENT
  Age: 52 Year
  Sex: Female
  Weight: 52.16 kg

DRUGS (3)
  1. VERZENIO [Suspect]
     Active Substance: ABEMACICLIB
     Indication: Breast cancer female
     Dosage: FREQUENCY : TWICE A DAY;?
     Route: 048
     Dates: start: 20220222, end: 20220802
  2. LETROZOLE [Concomitant]
     Active Substance: LETROZOLE
  3. OXYCODONE [Concomitant]
     Active Substance: OXYCODONE

REACTIONS (1)
  - Death [None]
